FAERS Safety Report 9025564 (Version 1)
Quarter: 2013Q1

REPORT INFORMATION
  Report Type: Report from Study
  Country: DE (occurrence: DE)
  Receive Date: 20130122
  Receipt Date: 20130122
  Transmission Date: 20140127
  Serious: Yes (Hospitalization)
  Sender: FDA-Public Use
  Company Number: DE-JNJFOC-20130110974

PATIENT
  Age: 18 Year
  Sex: Female
  Weight: 50.4 kg

DRUGS (3)
  1. REMICADE [Suspect]
     Indication: CROHN^S DISEASE
     Route: 042
     Dates: start: 20090317
  2. 5-ASA [Concomitant]
  3. L-THYROXIN [Concomitant]

REACTIONS (1)
  - Dermatitis atopic [Recovered/Resolved with Sequelae]
